FAERS Safety Report 16191352 (Version 1)
Quarter: 2019Q2

REPORT INFORMATION
  Report Type: Spontaneous
  Country: US (occurrence: US)
  Receive Date: 20190412
  Receipt Date: 20190412
  Transmission Date: 20190711
  Serious: No
  Sender: FDA-Public Use
  Company Number: US-TEVA-2019-US-1032212

PATIENT
  Age: 56 Year
  Sex: Female

DRUGS (2)
  1. ATENOLOL TABLETS [Suspect]
     Active Substance: ATENOLOL
  2. ATENOLOL TABLETS [Suspect]
     Active Substance: ATENOLOL
     Dosage: 50 MILLIGRAM DAILY;

REACTIONS (6)
  - Hypotension [Unknown]
  - Weight increased [Unknown]
  - Product dose omission [Unknown]
  - Insomnia [Recovering/Resolving]
  - Blood pressure increased [Unknown]
  - Anxiety [Unknown]
